FAERS Safety Report 16470789 (Version 3)
Quarter: 2019Q3

REPORT INFORMATION
  Report Type: Report from Study
  Country: UG (occurrence: UG)
  Receive Date: 20190624
  Receipt Date: 20190927
  Transmission Date: 20191004
  Serious: Yes (Congenital Anomaly)
  Sender: FDA-Public Use
  Company Number: UG-MYLANLABS-2019M1058216

PATIENT
  Sex: Female
  Weight: 3.7 kg

DRUGS (1)
  1. EFAVIRENZ/LAMIVUDINE/TENOFOVIR DISOPROXIL FUMARATE TABLETS [Suspect]
     Active Substance: EFAVIRENZ\LAMIVUDINE\TENOFOVIR DISOPROXIL FUMARATE
     Indication: HIV INFECTION
     Dosage: 1 DOSAGE FORM, QD
     Route: 064
     Dates: start: 20170721

REACTIONS (3)
  - Congenital umbilical hernia [Unknown]
  - Foetal exposure during pregnancy [Recovered/Resolved]
  - Congenital skin dimples [Unknown]
